FAERS Safety Report 25834615 (Version 3)
Quarter: 2025Q4

REPORT INFORMATION
  Report Type: Spontaneous
  Country: CA (occurrence: CA)
  Receive Date: 20250923
  Receipt Date: 20251028
  Transmission Date: 20260117
  Serious: Yes (Other)
  Sender: SPECGX
  Company Number: CA-SPECGX-T202501585

PATIENT

DRUGS (2)
  1. METHADOSE [Suspect]
     Active Substance: METHADONE HYDROCHLORIDE
     Indication: Neuropathy peripheral
     Dosage: UNK
     Route: 065
  2. DEXAMETHASONE [Suspect]
     Active Substance: DEXAMETHASONE
     Indication: Product used for unknown indication
     Dosage: UNK
     Route: 065

REACTIONS (4)
  - Steroid withdrawal syndrome [Unknown]
  - Toxicity to various agents [Unknown]
  - Overdose [Unknown]
  - Product use in unapproved indication [Unknown]
